FAERS Safety Report 8005467-8 (Version None)
Quarter: 2011Q4

REPORT INFORMATION
  Report Type: 
  Country: None (occurrence: None)
  Receive Date: 20111223
  Receipt Date: 20111212
  Transmission Date: 20120403
  Serious: Yes (Other)
  Sender: FDA-Public Use
  Company Number: VE-ROCHE-1023766

PATIENT
  Sex: Female

DRUGS (1)
  1. XOLAIR [Suspect]
     Indication: RESPIRATORY TRACT INFECTION

REACTIONS (1)
  - URINARY TRACT INFECTION [None]
